FAERS Safety Report 18251552 (Version 1)
Quarter: 2020Q3

REPORT INFORMATION
  Report Type: Spontaneous
  Country: CA (occurrence: CA)
  Receive Date: 20200910
  Receipt Date: 20200910
  Transmission Date: 20201103
  Serious: Yes (Hospitalization)
  Sender: FDA-Public Use
  Company Number: CA-ACCORD-200043

PATIENT
  Age: 48 Year
  Sex: Female
  Weight: 56 kg

DRUGS (10)
  1. OXALIPLATIN. [Suspect]
     Active Substance: OXALIPLATIN
     Indication: COLON CANCER
     Dosage: SOLUTION INTRAVENOUS, INJECTION?SINGLE USE VIALS
     Route: 042
  2. VALTREX [Concomitant]
     Active Substance: VALACYCLOVIR HYDROCHLORIDE
  3. STEMETIL [Concomitant]
     Active Substance: PROCHLORPERAZINE
     Dosage: SUPPOSITORY
  4. FLUOROURACIL. [Suspect]
     Active Substance: FLUOROURACIL
     Indication: COLON CANCER
     Dosage: SOLUTION INTRAVENOUS
     Route: 042
  5. CLOTRIMADERM [Concomitant]
     Active Substance: CLOTRIMAZOLE
     Dosage: CREAM 1 +
  6. PANTOLOC [Concomitant]
     Active Substance: PANTOPRAZOLE SODIUM
  7. TEVA?CYPROTERONE / ETHINYL ESTRADIOL [Concomitant]
  8. SIMVASTATIN. [Concomitant]
     Active Substance: SIMVASTATIN
     Dosage: SOLUTION INTRAVENOUS
  9. MOXIFLOXACIN/MOXIFLOXACIN HYDROCHLORIDE [Concomitant]
     Active Substance: MOXIFLOXACIN
  10. BI?PEGLYTE [Concomitant]
     Dosage: KIT

REACTIONS (12)
  - Blister [Unknown]
  - Diarrhoea [Unknown]
  - Dysgeusia [Unknown]
  - Epigastric discomfort [Unknown]
  - Hypoaesthesia [Unknown]
  - Skin exfoliation [Unknown]
  - Nausea [Unknown]
  - Palmar-plantar erythrodysaesthesia syndrome [Unknown]
  - Food aversion [Unknown]
  - Vomiting [Unknown]
  - Toxic skin eruption [Unknown]
  - Hypophagia [Unknown]
